FAERS Safety Report 18207417 (Version 1)
Quarter: 2020Q3

REPORT INFORMATION
  Report Type: Spontaneous
  Country: US (occurrence: US)
  Receive Date: 20200828
  Receipt Date: 20200828
  Transmission Date: 20201103
  Serious: Yes (Other)
  Sender: FDA-Public Use
  Company Number: None

PATIENT
  Age: 50 Year
  Sex: Female
  Weight: 65.25 kg

DRUGS (8)
  1. TESTOSSTERONE [Concomitant]
     Active Substance: TESTOSTERONE
  2. MELATONIN [Concomitant]
     Active Substance: MELATONIN
  3. PROGESTERONE. [Concomitant]
     Active Substance: PROGESTERONE
  4. FISH OIL [Concomitant]
     Active Substance: FISH OIL
  5. EUTHYROX [Suspect]
     Active Substance: LEVOTHYROXINE SODIUM
     Indication: HYPOTHYROIDISM
     Dosage: ?          OTHER STRENGTH:MCG;QUANTITY:30 TABLET(S);?
     Route: 048
  6. ESTROGEN [Concomitant]
     Active Substance: ESTROGENS
  7. COLLAGEN [Concomitant]
     Active Substance: COLLAGEN
  8. LIOTHYRONINE [Concomitant]
     Active Substance: LIOTHYRONINE

REACTIONS (5)
  - Product substitution issue [None]
  - Alopecia [None]
  - Heart rate increased [None]
  - Insomnia [None]
  - Palpitations [None]

NARRATIVE: CASE EVENT DATE: 20200701
